FAERS Safety Report 18943810 (Version 1)
Quarter: 2021Q1

REPORT INFORMATION
  Report Type: Spontaneous
  Country: JP (occurrence: JP)
  Receive Date: 20210226
  Receipt Date: 20210226
  Transmission Date: 20210420
  Serious: Yes (Hospitalization)
  Sender: FDA-Public Use
  Company Number: JP-ORGANON-O2102JPN007771

PATIENT
  Age: 85 Year
  Sex: Female

DRUGS (1)
  1. REFLEX [Suspect]
     Active Substance: MIRTAZAPINE
     Dosage: UNKNOWN
     Route: 048

REACTIONS (2)
  - Hyponatraemia [Recovered/Resolved]
  - Emotional distress [Recovering/Resolving]
